FAERS Safety Report 5273259-9 (Version None)
Quarter: 2007Q1

REPORT INFORMATION
  Report Type: 
  Country: None (occurrence: None)
  Receive Date: 20070319
  Receipt Date: 20070302
  Transmission Date: 20070707
  Serious: Yes (Life-Threatening, Other)
  Sender: FDA-Public Use
  Company Number: 805#1#2007-00002

PATIENT
  Age: 58 Year
  Sex: Male

DRUGS (2)
  1. PROSTANDIN - I.V. (APROSTADIL (PAOD)) [Suspect]
     Indication: ARTERIOSCLEROSIS OBLITERANS
     Dosage: 60 MCG (20 MCG 3 IN 1 DAY (S)) INTRAVENOUS DRIP
     Route: 041
     Dates: start: 20070207, end: 20070228
  2. THIAMINE DISULFIDE (THIAMINE DISULFIDE) [Concomitant]

REACTIONS (4)
  - ATRIAL FIBRILLATION [None]
  - CARDIAC ARREST [None]
  - DIZZINESS POSTURAL [None]
  - LOSS OF CONSCIOUSNESS [None]
